FAERS Safety Report 8127175-5 (Version None)
Quarter: 2012Q1

REPORT INFORMATION
  Report Type: 
  Country: None (occurrence: None)
  Receive Date: 20120210
  Receipt Date: 20120203
  Transmission Date: 20120608
  Serious: Yes (Hospitalization, Other)
  Sender: FDA-Public Use
  Company Number: BR-PFIZER INC-2012031513

PATIENT
  Age: 65 Year
  Sex: Female

DRUGS (5)
  1. LYRICA [Concomitant]
     Indication: SURGERY
     Dosage: UNK
     Route: 048
     Dates: start: 20110601
  2. LEFLUNOMIDE [Concomitant]
     Indication: ARTHRITIS
  3. CELEBREX [Suspect]
     Indication: PAIN
     Dosage: 200 MG (ONE TABLET), 3X/DAY
     Route: 048
     Dates: start: 20100101, end: 20111101
  4. TRAMADOL HYDROCHLORIDE [Suspect]
     Indication: SURGERY
     Dosage: UNK
     Dates: start: 20110601
  5. METHOTREXATE [Concomitant]
     Indication: SKIN CANCER

REACTIONS (5)
  - THYROID DISORDER [None]
  - NEOPLASM MALIGNANT [None]
  - SURGERY [None]
  - CALCIUM DEFICIENCY [None]
  - PNEUMONIA [None]
